FAERS Safety Report 21267266 (Version 1)
Quarter: 2022Q3

REPORT INFORMATION
  Report Type: Spontaneous
  Country: US (occurrence: None)
  Receive Date: 20220826
  Receipt Date: 20220826
  Transmission Date: 20221027
  Serious: Yes (Death)
  Sender: FDA-Public Use
  Company Number: None

PATIENT
  Age: 64 Year
  Sex: Female

DRUGS (1)
  1. REPATHA [Suspect]
     Active Substance: EVOLOCUMAB
     Dosage: 420MG MONTHLY SUBCUTANEOUSLY?
     Route: 058
     Dates: start: 20220721

REACTIONS (1)
  - Death [None]

NARRATIVE: CASE EVENT DATE: 20220807
